FAERS Safety Report 9738932 (Version 1)
Quarter: 2013Q4

REPORT INFORMATION
  Report Type: Spontaneous
  Country: IT (occurrence: IT)
  Receive Date: 20131209
  Receipt Date: 20131209
  Transmission Date: 20140711
  Serious: Yes (Hospitalization)
  Sender: FDA-Public Use
  Company Number: IT-BAYER-2013-147232

PATIENT
  Age: 73 Year
  Sex: Male

DRUGS (3)
  1. CARDIOASPIRIN [Suspect]
     Indication: ATRIAL FIBRILLATION
     Dosage: DAILY DOSE 100 MG
     Route: 048
     Dates: start: 20131015, end: 20131017
  2. EPSOCLAR [Suspect]
     Indication: PULMONARY EMBOLISM
     Dosage: DAILY DOSE 18 IU
     Route: 042
     Dates: start: 20131015
  3. COUMADIN [Suspect]
     Indication: PULMONARY EMBOLISM
     Dosage: UNK
     Route: 048
     Dates: start: 20131015, end: 20131018

REACTIONS (1)
  - Anaemia [Recovering/Resolving]
